FAERS Safety Report 22141669 (Version 1)
Quarter: 2023Q1

REPORT INFORMATION
  Report Type: Spontaneous
  Country: US (occurrence: US)
  Receive Date: 20230327
  Receipt Date: 20230327
  Transmission Date: 20230417
  Serious: No
  Sender: FDA-Public Use
  Company Number: US-PFIZER INC-202300129269

PATIENT
  Age: 51 Year
  Sex: Female

DRUGS (3)
  1. XELJANZ XR [Suspect]
     Active Substance: TOFACITINIB CITRATE
     Dosage: 11 MG, 1X/DAY
     Route: 048
     Dates: start: 202108, end: 2023
  2. PROBIOTICS NOS [Concomitant]
     Active Substance: PROBIOTICS NOS
     Dosage: 1 DF, AS NEEDED (1 CAP PO (PER ORAL) PRN)
     Route: 048
  3. BISACODYL [Concomitant]
     Active Substance: BISACODYL
     Dosage: 15 MG, AS NEEDED (LAXATIVE 15 MG TABLET-1 TAB PO (PER ORAL) PRN)
     Route: 048

REACTIONS (1)
  - Drug ineffective [Not Recovered/Not Resolved]
